FAERS Safety Report 6942342-1 (Version None)
Quarter: 2010Q3

REPORT INFORMATION
  Report Type: 
  Country: None (occurrence: None)
  Receive Date: 20100826
  Receipt Date: 20100823
  Transmission Date: 20110219
  Serious: Yes (Hospitalization)
  Sender: FDA-Public Use
  Company Number: US-BRISTOL-MYERS SQUIBB COMPANY-14018758

PATIENT
  Age: 54 Year
  Sex: Male
  Weight: 106 kg

DRUGS (15)
  1. PACLITAXEL [Suspect]
     Indication: NON-SMALL CELL LUNG CANCER
     Dosage: TOTAL DOSE 456 MG.CYCLE 3
     Route: 042
     Dates: start: 20061129
  2. CARBOPLATIN [Suspect]
     Indication: NON-SMALL CELL LUNG CANCER
     Dosage: 1 DOSAGE FORM=6AUC(TOTAL DAILY DOSE OF1100.4MG). CYCLES 3
     Route: 042
     Dates: start: 20061129
  3. CP-751,871 [Suspect]
     Indication: NON-SMALL CELL LUNG CANCER
     Dosage: TOTAL DOSE 1061MG.
     Route: 042
     Dates: start: 20061129
  4. WARFARIN SODIUM [Concomitant]
     Route: 048
     Dates: start: 20061018
  5. CODEINE + GUAIFENESIN [Concomitant]
     Route: 048
     Dates: start: 20061001
  6. ULTRAM [Concomitant]
     Route: 048
     Dates: start: 20070103
  7. LEXAPRO [Concomitant]
  8. AMBIEN [Concomitant]
  9. NEXIUM [Concomitant]
  10. CELEBREX [Concomitant]
  11. LORTAB [Concomitant]
  12. ZOFRAN [Concomitant]
  13. CODEINE SULFATE [Concomitant]
  14. ATIVAN [Concomitant]
  15. VI-Q-TUSS [Concomitant]

REACTIONS (2)
  - DEHYDRATION [None]
  - FAILURE TO THRIVE [None]
